FAERS Safety Report 5273156-9 (Version None)
Quarter: 2007Q1

REPORT INFORMATION
  Report Type: 
  Country: None (occurrence: None)
  Receive Date: 20070322
  Receipt Date: 20070319
  Transmission Date: 20070707
  Serious: Yes (Death, Life-Threatening, Hospitalization)
  Sender: FDA-Public Use
  Company Number: GB-BOEHRINGER INGELHEIM PHARMACEUTICALS, INC.-2007-UK-00959PF

PATIENT
  Age: 58 Year
  Sex: Female

DRUGS (2)
  1. SPIRIVA [Suspect]
  2. PREDNISOLONE [Concomitant]

REACTIONS (2)
  - CARDIAC DISORDER [None]
  - COUGH [None]
